FAERS Safety Report 16134113 (Version 1)
Quarter: 2019Q1

REPORT INFORMATION
  Report Type: Spontaneous
  Country: FR (occurrence: FR)
  Receive Date: 20190329
  Receipt Date: 20190329
  Transmission Date: 20190418
  Serious: Yes (Other)
  Sender: FDA-Public Use
  Company Number: FR-TEVA-2019-FR-1030762

PATIENT
  Age: 62 Year
  Sex: Female

DRUGS (2)
  1. NEBIVOLOL. [Suspect]
     Active Substance: NEBIVOLOL
     Indication: PRODUCT USED FOR UNKNOWN INDICATION
     Route: 048
  2. ODEFSEY [Suspect]
     Active Substance: EMTRICITABINE\RILPIVIRINE HYDROCHLORIDE\TENOFOVIR ALAFENAMIDE FUMARATE
     Indication: HIV INFECTION
     Route: 048
     Dates: start: 201710

REACTIONS (2)
  - Neuropathy peripheral [Not Recovered/Not Resolved]
  - Scleroderma [Not Recovered/Not Resolved]

NARRATIVE: CASE EVENT DATE: 201804
